FAERS Safety Report 11681337 (Version 3)
Quarter: 2015Q4

REPORT INFORMATION
  Report Type: Spontaneous
  Country: US (occurrence: US)
  Receive Date: 20151027
  Receipt Date: 20151110
  Transmission Date: 20160304
  Serious: No
  Sender: FDA-Public Use
  Company Number: US-ELI_LILLY_AND_COMPANY-US201010006828

PATIENT
  Sex: Female

DRUGS (5)
  1. FORTEO [Suspect]
     Active Substance: TERIPARATIDE
     Dosage: 20 UG, QD
     Route: 058
  2. FORTEO [Suspect]
     Active Substance: TERIPARATIDE
     Indication: OSTEOPOROSIS
     Dosage: 20 UG, QD
     Route: 058
  3. FORTEO [Suspect]
     Active Substance: TERIPARATIDE
     Dosage: 20 UG, QD
     Route: 058
  4. FORTEO [Suspect]
     Active Substance: TERIPARATIDE
     Dosage: 20 UG, QD
     Route: 058
  5. FORTEO [Suspect]
     Active Substance: TERIPARATIDE
     Dosage: 20 UG, QD
     Route: 058

REACTIONS (20)
  - Constipation [Recovered/Resolved]
  - Anxiety [Unknown]
  - Haematochezia [Unknown]
  - Arthralgia [Unknown]
  - Hypokinesia [Unknown]
  - Sinus disorder [Not Recovered/Not Resolved]
  - Abdominal discomfort [Unknown]
  - Back pain [Not Recovered/Not Resolved]
  - Musculoskeletal discomfort [Unknown]
  - Haemorrhoids [Recovered/Resolved]
  - Renal cyst [Not Recovered/Not Resolved]
  - Sinusitis [Unknown]
  - Dysphagia [Recovered/Resolved]
  - Gout [Unknown]
  - Peripheral swelling [Not Recovered/Not Resolved]
  - Anaemia [Unknown]
  - Pruritus [Unknown]
  - Intestinal obstruction [Recovered/Resolved]
  - Urinary tract infection [Unknown]
  - Vomiting [Unknown]
